FAERS Safety Report 16845168 (Version 3)
Quarter: 2019Q4

REPORT INFORMATION
  Report Type: Spontaneous
  Country: US (occurrence: US)
  Receive Date: 20190924
  Receipt Date: 20191014
  Transmission Date: 20200122
  Serious: No
  Sender: FDA-Public Use
  Company Number: US-PFIZER INC-2019407066

PATIENT
  Age: 66 Year
  Sex: Female
  Weight: 79.38 kg

DRUGS (1)
  1. VENLAFAXINE HCL [Suspect]
     Active Substance: VENLAFAXINE HYDROCHLORIDE
     Indication: DEPRESSION
     Dosage: 75 MG, 1X/DAY (ONCE DAILY/ONE CAPSULE EVERY MORNING)
     Route: 048
     Dates: start: 201909

REACTIONS (10)
  - Malaise [Unknown]
  - Heart rate increased [Unknown]
  - Tremor [Recovered/Resolved]
  - Migraine [Recovered/Resolved]
  - Feeling jittery [Recovered/Resolved]
  - Headache [Unknown]
  - Suspected counterfeit product [Unknown]
  - Drug ineffective [Unknown]
  - Feeling abnormal [Unknown]
  - Abdominal discomfort [Recovered/Resolved]

NARRATIVE: CASE EVENT DATE: 201909
